FAERS Safety Report 8468811-3 (Version None)
Quarter: 2012Q2

REPORT INFORMATION
  Report Type: 
  Country: None (occurrence: None)
  Receive Date: 20120626
  Receipt Date: 20120120
  Transmission Date: 20120825
  Serious: Yes (Other)
  Sender: FDA-Public Use
  Company Number: US-ROCHE-1033566

PATIENT
  Sex: Male

DRUGS (4)
  1. XELODA [Suspect]
     Indication: PANCREATIC CARCINOMA METASTATIC
  2. GEMZAR [Concomitant]
     Indication: PANCREATIC CARCINOMA METASTATIC
  3. TARCEVA [Suspect]
     Indication: PANCREATIC CARCINOMA METASTATIC
  4. TARCEVA [Suspect]

REACTIONS (2)
  - DEAFNESS [None]
  - RASH [None]
